FAERS Safety Report 12181033 (Version 1)
Quarter: 2016Q1

REPORT INFORMATION
  Report Type: Spontaneous
  Country: JP (occurrence: JP)
  Receive Date: 20160315
  Receipt Date: 20160315
  Transmission Date: 20160526
  Serious: Yes (Hospitalization)
  Sender: FDA-Public Use
  Company Number: JP-UNICHEM LABORATORIES LIMITED-UCM201603-000040

PATIENT
  Age: 70 Year
  Sex: Male

DRUGS (6)
  1. OMEPRAZOLE. [Suspect]
     Active Substance: OMEPRAZOLE
  2. CAMOSTAT MESILATE [Suspect]
     Active Substance: CAMOSTAT MESYLATE
  3. BENZBROMARONE [Suspect]
     Active Substance: BENZBROMARONE
     Dates: start: 201203
  4. SENNA [Suspect]
     Active Substance: SENNA LEAF\SENNOSIDES\SENNOSIDES A AND B
  5. BISOPROLOL FUMARATE. [Suspect]
     Active Substance: BISOPROLOL FUMARATE
  6. KALLIDINOGENASE [Suspect]
     Active Substance: KALLIDINOGENASE

REACTIONS (2)
  - Drug-induced liver injury [Recovered/Resolved]
  - Autoimmune hepatitis [Recovered/Resolved]
